FAERS Safety Report 13596934 (Version 8)
Quarter: 2021Q4

REPORT INFORMATION
  Report Type: Spontaneous
  Country: FR (occurrence: FR)
  Receive Date: 20170531
  Receipt Date: 20211027
  Transmission Date: 20220303
  Serious: Yes (Hospitalization)
  Sender: FDA-Public Use
  Company Number: FR-AUROBINDO-AUR-APL-2017-34638

PATIENT
  Age: 82 Year
  Sex: Male
  Weight: 78 kg

DRUGS (18)
  1. VALACYCLOVIR [Suspect]
     Active Substance: VALACYCLOVIR HYDROCHLORIDE
     Indication: Prophylaxis
     Dosage: 500 MG, ONCE A DAY
     Route: 048
     Dates: start: 20170106, end: 20170222
  2. BACTRIM [Suspect]
     Active Substance: SULFAMETHOXAZOLE\TRIMETHOPRIM
     Indication: Prophylaxis
     Dosage: 342, 8571 MG (800 MG, THREE TIMES WEEKLY)
     Route: 048
     Dates: start: 20170106, end: 20170222
  3. BACTRIM [Suspect]
     Active Substance: SULFAMETHOXAZOLE\TRIMETHOPRIM
     Dosage: 2400 MILLIGRAM ONCE IN A WEEK
     Route: 048
     Dates: start: 20170106, end: 20170222
  4. MABTHERA [Suspect]
     Active Substance: RITUXIMAB
     Indication: Product used for unknown indication
     Dosage: 375 MILLIGRAM/SQ. METER (17, 8571 MG/ M? (375 MG/ M?, ONCE EVERY 3 WEEKS))
     Route: 042
     Dates: start: 20170103, end: 20170131
  5. MABTHERA [Suspect]
     Active Substance: RITUXIMAB
     Indication: Mantle cell lymphoma
     Dosage: SECOND CYCLE ON 31-JAN-2017
     Route: 042
     Dates: start: 20170102, end: 20170131
  6. BENDAMUSTINE [Suspect]
     Active Substance: BENDAMUSTINE
     Indication: Mantle cell lymphoma
     Dosage: 180 MILLIGRAM/SQ. METER, 1 CYCLICAL
     Route: 042
     Dates: start: 20170103, end: 20170131
  7. BENDAMUSTINE [Suspect]
     Active Substance: BENDAMUSTINE
     Dosage: 90 MILLIGRAM/SQ. METER (SECOND CYCLE ON 31-JAN-2017)
     Route: 042
     Dates: start: 20170102, end: 20170131
  8. VELCADE [Suspect]
     Active Substance: BORTEZOMIB
     Indication: Product used for unknown indication
     Dosage: 5.2 MILLIGRAM/SQ. METER (5, 2 MG/ M? (1, 3 MG/ M?, 4 IN 1 CYCLE))
     Route: 058
     Dates: start: 20170103, end: 20170131
  9. VELCADE [Suspect]
     Active Substance: BORTEZOMIB
     Indication: Mantle cell lymphoma
     Dosage: SECOND CYCLE ON 31-JAN-2017 ; CYCLICAL
     Route: 058
     Dates: start: 20170102, end: 20170131
  10. DEXAMETHASONE SODIUM PHOSPHATE [Suspect]
     Active Substance: DEXAMETHASONE SODIUM PHOSPHATE
     Indication: Mantle cell lymphoma
     Dosage: 4 MILLIGRAM/KILOGRAM (UNK, 0, 1905 MG/ KG (4 MG/ KG, 1 IN 21 DAYS))
     Route: 065
     Dates: start: 20170103, end: 20170131
  11. DEXAMETHASONE SODIUM PHOSPHATE [Suspect]
     Active Substance: DEXAMETHASONE SODIUM PHOSPHATE
     Dosage: 4 MILLIGRAM/KILOGRAM, 21 DAYS(SECOND CYCLE ON 31-JAN-2017 )
     Route: 065
     Dates: start: 20170102, end: 20170131
  12. PRIMPERAN [Concomitant]
     Active Substance: METOCLOPRAMIDE HYDROCHLORIDE
     Indication: Product used for unknown indication
     Dosage: UNK
     Route: 065
  13. PRIMPERAN [Concomitant]
     Active Substance: METOCLOPRAMIDE HYDROCHLORIDE
     Indication: Vomiting
  14. MOVICOL [Concomitant]
     Active Substance: POLYETHYLENE GLYCOL 3350\POTASSIUM CHLORIDE\SODIUM BICARBONATE\SODIUM CHLORIDE
     Indication: Product used for unknown indication
     Dosage: UNK
     Route: 065
  15. ACYCLOVIR [Concomitant]
     Active Substance: ACYCLOVIR
     Indication: Product used for unknown indication
     Dosage: UNK
     Route: 065
  16. PROPYLENE GLYCOL [Concomitant]
     Active Substance: PROPYLENE GLYCOL
     Indication: Product used for unknown indication
     Dosage: UNK
     Route: 065
  17. NEOMYCIN [Concomitant]
     Active Substance: NEOMYCIN
     Indication: Product used for unknown indication
     Dosage: UNK
     Route: 065
  18. VASELINE PURE [Concomitant]
     Active Substance: PETROLATUM
     Indication: Product used for unknown indication
     Dosage: UNK
     Route: 065

REACTIONS (1)
  - Dermatitis exfoliative generalised [Recovered/Resolved]

NARRATIVE: CASE EVENT DATE: 20170217
